FAERS Safety Report 5301010-2 (Version None)
Quarter: 2007Q2

REPORT INFORMATION
  Report Type: 
  Country: None (occurrence: None)
  Receive Date: 20070418
  Receipt Date: 20070103
  Transmission Date: 20071010
  Serious: No
  Sender: FDA-Public Use
  Company Number: US-AMGEN-US205475

PATIENT
  Sex: Male

DRUGS (11)
  1. SENSIPAR [Suspect]
     Indication: HYPERPARATHYROIDISM SECONDARY
     Route: 065
     Dates: start: 20061229, end: 20061231
  2. NIFEDIPINE [Concomitant]
  3. RENALTABS [Concomitant]
  4. CLONIDINE [Concomitant]
  5. FLUOXETINE [Concomitant]
  6. RANITIDINE [Concomitant]
  7. METOPROLOL SUCCINATE [Concomitant]
  8. PHOSLO [Concomitant]
  9. METRONIDAZOLE [Concomitant]
  10. ZOCOR [Concomitant]
  11. PENTOXIFYLLINE [Concomitant]

REACTIONS (2)
  - DEHYDRATION [None]
  - DIARRHOEA [None]
